FAERS Safety Report 10227409 (Version 1)
Quarter: 2014Q2

REPORT INFORMATION
  Report Type: Spontaneous
  Country: DK (occurrence: DK)
  Receive Date: 20140610
  Receipt Date: 20140610
  Transmission Date: 20141212
  Serious: Yes (Life-Threatening)
  Sender: FDA-Public Use
  Company Number: DK-ROXANE LABORATORIES, INC.-2014-RO-00853RO

PATIENT
  Age: 66 Year
  Sex: Male

DRUGS (1)
  1. METHOTREXATE [Suspect]
     Indication: PSORIATIC ARTHROPATHY
     Route: 065

REACTIONS (3)
  - Amoebic colitis [Recovered/Resolved]
  - Dysentery [Recovered/Resolved]
  - Necrotising colitis [Recovered/Resolved]
